FAERS Safety Report 18156695 (Version 1)
Quarter: 2020Q3

REPORT INFORMATION
  Report Type: Spontaneous
  Country: US (occurrence: US)
  Receive Date: 20200817
  Receipt Date: 20200817
  Transmission Date: 20201103
  Serious: Yes (Life-Threatening, Hospitalization)
  Sender: FDA-Public Use
  Company Number: None

PATIENT
  Age: 69 Year
  Sex: Female
  Weight: 74 kg

DRUGS (13)
  1. VITAMIN D3 2000 UNITS [Concomitant]
  2. PHILLIPS COLON HEALTH [Concomitant]
  3. BUSPIRONE [Concomitant]
     Active Substance: BUSPIRONE HYDROCHLORIDE
  4. CALCIUM CHLORIDE. [Concomitant]
     Active Substance: CALCIUM CHLORIDE
  5. DRONEDARONE 400MG [Concomitant]
  6. FERROUS SULFATE 325 MG [Concomitant]
  7. MAGNESIUM OXIDE 400MG [Concomitant]
     Active Substance: MAGNESIUM OXIDE
  8. OMEPRAZOLE 20MG [Concomitant]
     Active Substance: OMEPRAZOLE
  9. XARELTO [Suspect]
     Active Substance: RIVAROXABAN
     Indication: ATRIAL FIBRILLATION
     Route: 048
     Dates: start: 20170528, end: 20200803
  10. FORTEO [Concomitant]
     Active Substance: TERIPARATIDE
  11. FOLIC ACID 1 MG [Concomitant]
  12. MULTIVITAMIN [Concomitant]
     Active Substance: VITAMINS
  13. SARILUMAB 200MG [Concomitant]

REACTIONS (9)
  - Tooth extraction [None]
  - Gingival bleeding [None]
  - Tachycardia [None]
  - Syncope [None]
  - Melaena [None]
  - Hypotension [None]
  - Haemoglobin decreased [None]
  - Fall [None]
  - Vomiting [None]

NARRATIVE: CASE EVENT DATE: 20200804
